FAERS Safety Report 8810661 (Version 1)
Quarter: 2012Q4

REPORT INFORMATION
  Report Type: Spontaneous
  Country: US (occurrence: None)
  Receive Date: 20120920
  Receipt Date: 20120920
  Transmission Date: 20130627
  Serious: Yes (Life-Threatening, Hospitalization, Other)
  Sender: FDA-Public Use
  Company Number: ADR-2012-01715

PATIENT
  Sex: Male

DRUGS (1)
  1. BACLOFEN INTRATHECAL [Suspect]
     Indication: SPASTICITY

REACTIONS (4)
  - Procedural haemorrhage [None]
  - Withdrawal syndrome [None]
  - Device computer issue [None]
  - Drug administration error [None]
